FAERS Safety Report 5993804-5 (Version None)
Quarter: 2008Q4

REPORT INFORMATION
  Report Type: 
  Country: None (occurrence: None)
  Receive Date: 20081212
  Receipt Date: 20081212
  Transmission Date: 20090506
  Serious: Yes (Other)
  Sender: FDA-Public Use
  Company Number: A0760114A

PATIENT
  Age: 53 Year
  Sex: Male

DRUGS (1)
  1. ALLI [Suspect]
     Route: 048

REACTIONS (7)
  - ABDOMINAL DISCOMFORT [None]
  - ABDOMINAL PAIN [None]
  - ABDOMINAL PAIN UPPER [None]
  - CONSTIPATION [None]
  - HEPATIC STEATOSIS [None]
  - HEPATOMEGALY [None]
  - PAIN [None]
